FAERS Safety Report 6715578-2 (Version None)
Quarter: 2010Q2

REPORT INFORMATION
  Report Type: 
  Country: None (occurrence: None)
  Receive Date: 20100507
  Receipt Date: 20100427
  Transmission Date: 20101027
  Serious: Yes (Other)
  Sender: FDA-Public Use
  Company Number: PHHY2010CA19517

PATIENT
  Sex: Female

DRUGS (14)
  1. ALISKIREN ALI+ [Suspect]
     Indication: HYPERTENSION
     Dosage: 150 MG DAILY
     Route: 048
     Dates: start: 20091215
  2. CALCIUM CHANNEL BLOCKERS [Concomitant]
  3. DIURETICS [Concomitant]
  4. ANGIOTENSIN CONVERTING ENZYME BLOCKERS [Concomitant]
  5. BETA BLOCKING AGENTS [Concomitant]
  6. COZAAR [Concomitant]
     Dosage: 100 MG OD
  7. LASIX [Concomitant]
     Dosage: 80 MG BID
  8. INSULIN [Concomitant]
  9. PRANDASE [Concomitant]
     Dosage: 50 MG TID
  10. LIPITOR [Concomitant]
     Dosage: 40 MG OD
  11. NORVASC [Concomitant]
     Dosage: 5 MG OD
  12. SPIRIVA [Concomitant]
  13. ADVAIR DISKUS 100/50 [Concomitant]
  14. COUMADIN [Concomitant]

REACTIONS (1)
  - URINE ALBUMIN/CREATININE RATIO INCREASED [None]
